FAERS Safety Report 8570215-X (Version None)
Quarter: 2012Q3

REPORT INFORMATION
  Report Type: 
  Country: None (occurrence: None)
  Receive Date: 20120803
  Receipt Date: 20120726
  Transmission Date: 20120928
  Serious: No
  Sender: FDA-Public Use
  Company Number: JP-PFIZER INC-2012174357

PATIENT

DRUGS (1)
  1. VARENICLINE [Suspect]
     Dosage: 1 MG PER DAY
     Dates: start: 20120711

REACTIONS (1)
  - NO ADVERSE EVENT [None]
